FAERS Safety Report 8369220-8 (Version None)
Quarter: 2012Q2

REPORT INFORMATION
  Report Type: 
  Country: None (occurrence: None)
  Receive Date: 20120518
  Receipt Date: 20120509
  Transmission Date: 20120825
  Serious: Yes (Hospitalization, Other)
  Sender: FDA-Public Use
  Company Number: US-ELI_LILLY_AND_COMPANY-US201108000702

PATIENT
  Sex: Female

DRUGS (12)
  1. CRESTOR [Concomitant]
     Dosage: 10 MG, UNK
  2. VITAMIN TAB [Concomitant]
  3. CALCIUM [Concomitant]
     Dosage: 1.2 G, UNK
  4. FORTEO [Suspect]
     Dosage: 20 UG, QD
     Route: 058
  5. FORTEO [Suspect]
     Indication: OSTEOPOROSIS
     Dosage: 20 UG, QD
     Route: 058
  6. FORTEO [Suspect]
     Dosage: 20 UG, QD
     Route: 058
  7. FORTEO [Suspect]
     Dosage: 20 UG, QD
     Route: 058
  8. CORTISONE ACETATE [Concomitant]
     Indication: CUSHING'S SYNDROME
     Dosage: 5 MG, QD
  9. FORTEO [Suspect]
     Dosage: 20 UG, QD
     Route: 058
  10. FORTEO [Suspect]
     Dosage: 20 UG, QD
     Route: 058
  11. LUNESTA [Concomitant]
     Indication: SLEEP DISORDER
  12. PLAVIX [Concomitant]
     Dosage: 75 MG, UNK

REACTIONS (19)
  - PAIN [None]
  - CARDIAC VALVE DISEASE [None]
  - MUSCLE DISORDER [None]
  - PAIN IN EXTREMITY [None]
  - DIZZINESS [None]
  - HERPES ZOSTER [None]
  - PAIN IN JAW [None]
  - RENAL FAILURE [None]
  - RESPIRATORY FAILURE [None]
  - DYSPNOEA [None]
  - ARTHRITIS [None]
  - ARTHROPATHY [None]
  - PULMONARY OEDEMA [None]
  - FATIGUE [None]
  - BALANCE DISORDER [None]
  - FLUID RETENTION [None]
  - LIMB DISCOMFORT [None]
  - ASTHENIA [None]
  - MOBILITY DECREASED [None]
